FAERS Safety Report 16291116 (Version 3)
Quarter: 2019Q2

REPORT INFORMATION
  Report Type: Spontaneous
  Country: US (occurrence: US)
  Receive Date: 20190509
  Receipt Date: 20190628
  Transmission Date: 20190711
  Serious: No
  Sender: FDA-Public Use
  Company Number: US-PFIZER INC-2019196264

PATIENT
  Age: 69 Year
  Sex: Female
  Weight: 95.7 kg

DRUGS (2)
  1. BOSULIF [Suspect]
     Active Substance: BOSUTINIB MONOHYDRATE
     Indication: CHRONIC MYELOID LEUKAEMIA
     Dosage: 400 MG, 1X/DAY
     Route: 048
     Dates: start: 201901
  2. BOSULIF [Suspect]
     Active Substance: BOSUTINIB MONOHYDRATE
     Indication: CHRONIC MYELOID LEUKAEMIA
     Dosage: 300 MG, 1X/DAY (100 MG ORAL TABLET DIRECTION FOR USE: 3 TAB(S), AS DIRECTED)
     Route: 048

REACTIONS (11)
  - Decreased appetite [Unknown]
  - Asthenia [Unknown]
  - Chills [Unknown]
  - Pain [Unknown]
  - Rash pruritic [Unknown]
  - Sinusitis [Unknown]
  - Abdominal pain upper [Unknown]
  - Pyrexia [Unknown]
  - Joint stiffness [Unknown]
  - Fatigue [Unknown]
  - Sneezing [Unknown]
